FAERS Safety Report 8074404-2 (Version None)
Quarter: 2012Q1

REPORT INFORMATION
  Report Type: 
  Country: None (occurrence: None)
  Receive Date: 20120126
  Receipt Date: 20120116
  Transmission Date: 20120608
  Serious: Yes (Hospitalization, Disabling)
  Sender: FDA-Public Use
  Company Number: JP-GLAXOSMITHKLINE-B0710398A

PATIENT
  Sex: Female
  Weight: 42 kg

DRUGS (7)
  1. LOXONIN [Concomitant]
     Indication: HYPOAESTHESIA
     Route: 048
  2. TYKERB [Suspect]
     Indication: BREAST CANCER
     Dosage: 1250MG PER DAY
     Route: 048
     Dates: start: 20091209, end: 20091219
  3. SELBEX [Concomitant]
     Indication: HYPOAESTHESIA
     Route: 048
  4. TYKERB [Suspect]
     Dosage: 1250MG PER DAY
     Route: 048
     Dates: start: 20100119, end: 20100413
  5. XELODA [Suspect]
     Indication: PRODUCT USED FOR UNKNOWN INDICATION
     Dosage: 2400MG PER DAY
     Route: 048
     Dates: start: 20091209, end: 20091219
  6. XELODA [Suspect]
     Dosage: 2400MG PER DAY
     Route: 048
     Dates: start: 20100106, end: 20100413
  7. PYDOXAL [Concomitant]
     Indication: PALMAR-PLANTAR ERYTHRODYSAESTHESIA SYNDROME
     Route: 048
     Dates: start: 20091208, end: 20100413

REACTIONS (2)
  - CARDIAC DISORDER [None]
  - RENAL IMPAIRMENT [None]
